FAERS Safety Report 16155258 (Version 2)
Quarter: 2023Q2

REPORT INFORMATION
  Report Type: Spontaneous
  Country: US (occurrence: US)
  Receive Date: 20190403
  Receipt Date: 20230414
  Transmission Date: 20230721
  Serious: No
  Sender: FDA-Public Use
  Company Number: US-JNJFOC-20190237511

PATIENT
  Sex: Female

DRUGS (1)
  1. IMODIUM A-D [Suspect]
     Active Substance: LOPERAMIDE HYDROCHLORIDE
     Indication: Diarrhoea
     Dosage: THE PATIENT WAS TOLD BY THE DOCTOR TO TAKE FOURTH TO HALF OF TABLET AS NEEDED FOR A CONDITION THAT P
     Route: 048

REACTIONS (1)
  - Incorrect product dosage form administered [Unknown]
